FAERS Safety Report 9719178 (Version 2)
Quarter: 2013Q4

REPORT INFORMATION
  Report Type: Spontaneous
  Country: AU (occurrence: AU)
  Receive Date: 20131127
  Receipt Date: 20131127
  Transmission Date: 20140711
  Serious: Yes (Hospitalization, Other)
  Sender: FDA-Public Use
  Company Number: PHHY2013AU123083

PATIENT
  Age: 77 Year
  Sex: Female

DRUGS (1)
  1. AFINITOR [Suspect]
     Indication: BREAST CANCER METASTATIC
     Dosage: 10 MG, DAILY
     Route: 048
     Dates: start: 20130801, end: 20131014

REACTIONS (5)
  - Pneumonitis [Recovered/Resolved]
  - Dyspnoea [Unknown]
  - Cough [Unknown]
  - Cerebrovascular accident [Recovered/Resolved]
  - Cyanosis [Unknown]
